FAERS Safety Report 5564979-7 (Version None)
Quarter: 2007Q4

REPORT INFORMATION
  Report Type: 
  Country: None (occurrence: None)
  Receive Date: 20071218
  Receipt Date: 20071214
  Transmission Date: 20080405
  Serious: Yes (Hospitalization)
  Sender: FDA-Public Use
  Company Number: B0500107A

PATIENT
  Sex: Female

DRUGS (2)
  1. KIVEXA [Suspect]
     Indication: ANTIRETROVIRAL THERAPY
     Dosage: 1CAP PER DAY
     Route: 048
     Dates: start: 20071124
  2. ATAZANAVIR [Concomitant]
     Dosage: 1CAP PER DAY
     Route: 048
     Dates: start: 20071124

REACTIONS (2)
  - FACE OEDEMA [None]
  - VASCULITIS [None]
